FAERS Safety Report 8727048 (Version 2)
Quarter: 2012Q4

REPORT INFORMATION
  Report Type: 
  Country: FI (occurrence: FI)
  Receive Date: 20120816
  Receipt Date: 20121128
  Transmission Date: 20130627
  Serious: Yes (Death, Hospitalization)
  Sender: FDA-Public Use
  Company Number: FI-GLAXOSMITHKLINE-B0822962A

PATIENT
  Sex: Male

DRUGS (9)
  1. ARZERRA [Suspect]
     Indication: CHRONIC LYMPHOCYTIC LEUKAEMIA
     Dosage: 1000MG Twice per day
     Route: 042
     Dates: start: 20120202, end: 20120228
  2. COTRIM [Concomitant]
     Indication: INFECTION PROPHYLAXIS
     Dosage: 1TAB per day
     Route: 048
  3. ACICLOVIRUM [Concomitant]
     Indication: ANTIVIRAL PROPHYLAXIS
     Route: 048
  4. KALCIPOS D [Concomitant]
     Route: 048
  5. PANADOL FORTE [Concomitant]
     Indication: PAIN
     Route: 048
  6. GAMMAGLOBULIN [Concomitant]
     Indication: HYPOGAMMAGLOBULINAEMIA
     Route: 042
  7. CEFTRIAXONE [Concomitant]
     Indication: PNEUMONIA
  8. AVELOX [Concomitant]
     Indication: PNEUMONIA
     Route: 048
  9. CEFUROXIME [Concomitant]
     Indication: PNEUMONIA

REACTIONS (4)
  - Neuropathy peripheral [Unknown]
  - Pneumonia [Unknown]
  - Myelopathy [Unknown]
  - Death [Fatal]
